FAERS Safety Report 5724677-3 (Version None)
Quarter: 2008Q2

REPORT INFORMATION
  Report Type: 
  Country: None (occurrence: None)
  Receive Date: 20080501
  Receipt Date: 20080422
  Transmission Date: 20081010
  Serious: Yes (Hospitalization)
  Sender: FDA-Public Use
  Company Number: US-ELI_LILLY_AND_COMPANY-US200804005702

PATIENT
  Sex: Male

DRUGS (4)
  1. ZYPREXA [Suspect]
     Indication: BIPOLAR DISORDER
     Dosage: 5 MG, DAILY (1/D)
     Dates: start: 20080101
  2. ZYPREXA [Suspect]
     Dosage: 10 MG, DAILY (1/D)
  3. ZYPREXA [Suspect]
     Dosage: 15 MG, DAILY (1/D)
  4. FLUOXETINE [Concomitant]

REACTIONS (3)
  - HOSPITALISATION [None]
  - SOMNOLENCE [None]
  - WEIGHT INCREASED [None]
